FAERS Safety Report 18858259 (Version 1)
Quarter: 2021Q1

REPORT INFORMATION
  Report Type: Spontaneous
  Country: ES (occurrence: ES)
  Receive Date: 20210208
  Receipt Date: 20210208
  Transmission Date: 20210420
  Serious: Yes (Death, Other)
  Sender: FDA-Public Use
  Company Number: ES-LUPIN PHARMACEUTICALS INC.-2021-01305

PATIENT
  Sex: Female

DRUGS (2)
  1. IMATINIB MESYLATE. [Suspect]
     Active Substance: IMATINIB MESYLATE
     Indication: CHRONIC MYELOID LEUKAEMIA
     Dosage: UNK
     Route: 065
  2. GEFITINIB. [Interacting]
     Active Substance: GEFITINIB
     Indication: LUNG ADENOCARCINOMA
     Dosage: UNK
     Route: 065

REACTIONS (3)
  - Pancreatitis acute [Fatal]
  - Drug interaction [Unknown]
  - Neoplasm progression [Unknown]
